FAERS Safety Report 7434866-8 (Version None)
Quarter: 2011Q2

REPORT INFORMATION
  Report Type: 
  Country: None (occurrence: None)
  Receive Date: 20110425
  Receipt Date: 20110412
  Transmission Date: 20111010
  Serious: Yes (Other)
  Sender: FDA-Public Use
  Company Number: US-ENDO PHARMACEUTICALS INC.-OXYC20110010

PATIENT
  Sex: Male
  Weight: 113.5 kg

DRUGS (3)
  1. OXYCODONE HCL 30MG [Suspect]
     Indication: BACK PAIN
     Route: 048
     Dates: start: 20110301, end: 20110411
  2. OXYCODONE HCL 30MG [Suspect]
     Indication: MULTIPLE SCLEROSIS
  3. METADONE [Concomitant]
     Indication: BACK PAIN
     Route: 048

REACTIONS (6)
  - NAUSEA [None]
  - CONSTIPATION [None]
  - DRUG INEFFECTIVE [None]
  - HAEMOPTYSIS [None]
  - HAEMATEMESIS [None]
  - ABDOMINAL DISTENSION [None]
